FAERS Safety Report 11044349 (Version 1)
Quarter: 2015Q2

REPORT INFORMATION
  Report Type: Spontaneous
  Country: IR (occurrence: None)
  Receive Date: 20150415
  Receipt Date: 20150415
  Transmission Date: 20150821
  Serious: Yes (Hospitalization)
  Sender: FDA-Public Use
  Company Number: 2015FE01148

PATIENT
  Age: 23 Year
  Sex: Female

DRUGS (1)
  1. UNKNOWN (DESMOPRESSIN) UNKNOWN [Suspect]
     Active Substance: DESMOPRESSIN
     Indication: DIABETES INSIPIDUS
     Route: 045

REACTIONS (5)
  - Dysphagia [None]
  - Quadriparesis [None]
  - Dysarthria [None]
  - Osmotic demyelination syndrome [None]
  - Hyponatraemia [None]
